FAERS Safety Report 13100283 (Version 1)
Quarter: 2017Q1

REPORT INFORMATION
  Report Type: Spontaneous
  Country: FR (occurrence: FR)
  Receive Date: 20170110
  Receipt Date: 20170110
  Transmission Date: 20170428
  Serious: Yes (Hospitalization)
  Sender: FDA-Public Use
  Company Number: FR-ROCHE-1876154

PATIENT
  Age: 69 Year
  Sex: Female

DRUGS (7)
  1. AFINITOR [Concomitant]
     Active Substance: EVEROLIMUS
     Route: 065
     Dates: start: 201201, end: 201303
  2. AVASTIN [Suspect]
     Active Substance: BEVACIZUMAB
     Indication: ENDOCRINE NEOPLASM
     Route: 041
     Dates: start: 201411, end: 201503
  3. XELODA [Concomitant]
     Active Substance: CAPECITABINE
     Route: 065
     Dates: start: 201411, end: 201503
  4. AFINITOR [Concomitant]
     Active Substance: EVEROLIMUS
     Route: 065
     Dates: start: 201309
  5. AFINITOR [Concomitant]
     Active Substance: EVEROLIMUS
     Route: 065
  6. AFINITOR [Concomitant]
     Active Substance: EVEROLIMUS
     Route: 065
     Dates: start: 201408, end: 201411
  7. AFINITOR [Concomitant]
     Active Substance: EVEROLIMUS
     Route: 065

REACTIONS (2)
  - Chronic kidney disease [Not Recovered/Not Resolved]
  - Kidney fibrosis [Not Recovered/Not Resolved]

NARRATIVE: CASE EVENT DATE: 201411
